FAERS Safety Report 18564116 (Version 1)
Quarter: 2020Q4

REPORT INFORMATION
  Report Type: Spontaneous
  Country: US (occurrence: US)
  Receive Date: 20201130
  Receipt Date: 20201130
  Transmission Date: 20210114
  Serious: Yes (Other)
  Sender: FDA-Public Use
  Company Number: None

PATIENT
  Age: 28 Year
  Sex: Female
  Weight: 103.5 kg

DRUGS (7)
  1. ARMOUR THYROID [Suspect]
     Active Substance: THYROID, PORCINE
     Indication: HYPOTHYROIDISM
     Route: 048
     Dates: start: 20200901, end: 20201130
  2. METFORMIN [Concomitant]
     Active Substance: METFORMIN HYDROCHLORIDE
  3. OIL OF EVENING PRIMROSE [Concomitant]
  4. VITAMIN D [Concomitant]
     Active Substance: VITAMIN D NOS
  5. MULTIVITAMIN [Concomitant]
     Active Substance: VITAMINS
  6. IRON [Concomitant]
     Active Substance: IRON
  7. ARMOUR THYROID [Suspect]
     Active Substance: THYROID, PORCINE
     Indication: AUTOIMMUNE THYROIDITIS
     Route: 048
     Dates: start: 20200901, end: 20201130

REACTIONS (14)
  - Manufacturing issue [None]
  - Swelling face [None]
  - Temperature intolerance [None]
  - Trichorrhexis [None]
  - Loss of personal independence in daily activities [None]
  - Myalgia [None]
  - Fatigue [None]
  - Weight increased [None]
  - Alopecia [None]
  - Feeling abnormal [None]
  - Musculoskeletal stiffness [None]
  - Depression [None]
  - Asthenia [None]
  - Dry skin [None]

NARRATIVE: CASE EVENT DATE: 20200901
